FAERS Safety Report 9821024 (Version 1)
Quarter: 2014Q1

REPORT INFORMATION
  Report Type: Spontaneous
  Country: US (occurrence: US)
  Receive Date: 20140116
  Receipt Date: 20140116
  Transmission Date: 20141002
  Serious: Yes (Other)
  Sender: FDA-Public Use
  Company Number: US-BAYER-2014-006842

PATIENT
  Age: 41 Year
  Sex: Female
  Weight: 83.9 kg

DRUGS (3)
  1. YASMIN [Suspect]
     Dosage: UNK
  2. PROMETHAZINE W/CODEINE [Concomitant]
  3. HYDROCODONE [Concomitant]

REACTIONS (1)
  - Pulmonary embolism [None]
